FAERS Safety Report 14920440 (Version 4)
Quarter: 2018Q2

REPORT INFORMATION
  Report Type: Spontaneous
  Country: PL (occurrence: PL)
  Receive Date: 20180521
  Receipt Date: 20180626
  Transmission Date: 20180711
  Serious: Yes (Other)
  Sender: FDA-Public Use
  Company Number: PHHY2018PL001152

PATIENT
  Age: 28 Year
  Sex: Female
  Weight: 62 kg

DRUGS (3)
  1. BROMERGON [Suspect]
     Active Substance: BROMOCRIPTINE MESYLATE
     Dosage: 0.5 DF, QD SECOND DOSE (TAKEN BEFORE BEDTIME)
     Route: 048
  2. BROMERGON [Suspect]
     Active Substance: BROMOCRIPTINE MESYLATE
     Dosage: 0.5 DF, QD (THIRD DOSE HALF TABLET)
     Route: 048
  3. BROMERGON [Suspect]
     Active Substance: BROMOCRIPTINE MESYLATE
     Indication: HYPERPROLACTINAEMIA
     Dosage: 0.5 DF, QD (EVENING) FIRST DOSE
     Route: 048
     Dates: start: 20180512

REACTIONS (8)
  - Dementia [Recovered/Resolved]
  - Nausea [Recovered/Resolved]
  - Headache [Recovered/Resolved]
  - Loss of consciousness [Recovered/Resolved]
  - Asthenia [Recovered/Resolved]
  - Amenorrhoea [Recovered/Resolved]
  - Confusional state [Recovered/Resolved]
  - Vision blurred [Recovered/Resolved]
